FAERS Safety Report 8890312 (Version 1)
Quarter: 2012Q4

REPORT INFORMATION
  Report Type: 
  Country: JP (occurrence: JP)
  Receive Date: 20121107
  Receipt Date: 20121107
  Transmission Date: 20130627
  Serious: Yes (Congenital Anomaly, Other)
  Sender: FDA-Public Use
  Company Number: JP-009507513-1208JPN003831

PATIENT
  Age: 65 Year
  Sex: Male

DRUGS (8)
  1. PEGINTRON [Suspect]
     Indication: HEPATITIS C
     Dosage: 80 Microgram, UNK
     Route: 058
     Dates: start: 20120214, end: 20120305
  2. PEGINTRON [Suspect]
     Dosage: 40 Microgram, qw
     Route: 058
     Dates: start: 20120306, end: 20120327
  3. REBETOL [Suspect]
     Indication: HEPATITIS C
     Dosage: 800 mg, qd
     Route: 048
     Dates: start: 20120214, end: 20120228
  4. REBETOL [Suspect]
     Dosage: 600 mg, qd
     Route: 048
     Dates: start: 20120229, end: 20120327
  5. TELAVIC [Suspect]
     Indication: HEPATITIS C
     Dosage: 2250 mg, qd
     Route: 048
     Dates: start: 20120214, end: 20120228
  6. TELAVIC [Suspect]
     Dosage: 1500 mg, qd
     Route: 048
     Dates: start: 20120229, end: 20120327
  7. SEIBULE [Concomitant]
     Indication: DIABETES MELLITUS
     Dosage: 150 mg, qd
     Route: 048
  8. METGLUCO [Concomitant]
     Indication: DIABETES MELLITUS
     Dosage: 750 mg, qd
     Route: 048

REACTIONS (3)
  - Blood uric acid increased [Recovered/Resolved]
  - White blood cell count decreased [Not Recovered/Not Resolved]
  - Pancreatitis acute [Recovered/Resolved]
